FAERS Safety Report 10053354 (Version 1)
Quarter: 2014Q2

REPORT INFORMATION
  Report Type: Spontaneous
  Country: CH (occurrence: CH)
  Receive Date: 20140402
  Receipt Date: 20140402
  Transmission Date: 20141212
  Serious: Yes (Hospitalization)
  Sender: FDA-Public Use
  Company Number: PHHY2014CH037452

PATIENT
  Age: 61 Year
  Sex: Male

DRUGS (11)
  1. LEPONEX [Suspect]
     Dosage: 200 MG, QD
     Route: 048
     Dates: start: 201303, end: 20140210
  2. ASPIRIN CARDIO [Concomitant]
     Dosage: 100 MG, QD
     Route: 048
  3. ALDACTONE [Concomitant]
     Dosage: 2 DF, QD
     Route: 048
  4. ENATEC [Concomitant]
     Dosage: 10 MG, BID
     Route: 048
  5. CONCOR [Concomitant]
     Dosage: 10 MG, QD
     Route: 048
  6. TORASEMID [Concomitant]
     Dosage: 10 MG, QD
     Route: 048
  7. DIGOXIN-SANDOZ [Concomitant]
     Dosage: 0.125 MG, UNK
     Route: 048
  8. SINTROM [Concomitant]
     Dosage: 1 MG, UNK
     Route: 048
  9. LANTUS [Concomitant]
     Dosage: 34 IU, QD
     Route: 058
  10. SERTRALIN [Concomitant]
     Dosage: 50 MG, BID
     Route: 048
  11. SERESTA [Concomitant]
     Dosage: 15 MG, QD
     Route: 048

REACTIONS (2)
  - Cardiac disorder [Not Recovered/Not Resolved]
  - Cardiogenic shock [Not Recovered/Not Resolved]
